FAERS Safety Report 6721199-8 (Version None)
Quarter: 2010Q2

REPORT INFORMATION
  Report Type: 
  Country: None (occurrence: None)
  Receive Date: 20100512
  Receipt Date: 20100512
  Transmission Date: 20101027
  Serious: No
  Sender: FDA-Public Use
  Company Number: None

PATIENT

DRUGS (2)
  1. CONCENTRATED TYLENOL INFANT DROPS [Suspect]
     Indication: IMMUNISATION
     Dosage: MANUFACTURER RECOMMENDED DOSE 1//DAY PO
     Route: 048
     Dates: start: 20100429, end: 20100430
  2. CONCENTRATED TYLENOL INFANT DROPS [Suspect]
     Indication: PAIN
     Dosage: MANUFACTURER RECOMMENDED DOSE 1//DAY PO
     Route: 048
     Dates: start: 20100429, end: 20100430

REACTIONS (4)
  - ABNORMAL BEHAVIOUR [None]
  - AGITATION [None]
  - CONSTIPATION [None]
  - NO THERAPEUTIC RESPONSE [None]
